FAERS Safety Report 4746629-2 (Version None)
Quarter: 2005Q3

REPORT INFORMATION
  Report Type: 
  Country: None (occurrence: None)
  Receive Date: 20050817
  Receipt Date: 20050811
  Transmission Date: 20060218
  Serious: Yes (Hospitalization)
  Sender: FDA-Public Use
  Company Number: PHBS2005NO11756

PATIENT
  Age: 37 Year
  Sex: Female

DRUGS (3)
  1. RITALIN [Suspect]
     Indication: ATTENTION DEFICIT/HYPERACTIVITY DISORDER
     Dosage: 20 MG, TID
     Route: 048
     Dates: start: 20040331, end: 20050727
  2. CATAFLAM [Suspect]
     Indication: MYALGIA
     Dosage: 50 MG, BID
     Route: 048
  3. PARACET [Concomitant]
     Dosage: 3000 MG, QD
     Route: 048

REACTIONS (5)
  - EPISTAXIS [None]
  - HYPOAESTHESIA [None]
  - HYPOTONIA [None]
  - NAUSEA [None]
  - SELF-MEDICATION [None]
